FAERS Safety Report 24361972 (Version 1)
Quarter: 2024Q3

REPORT INFORMATION
  Report Type: Spontaneous
  Country: US (occurrence: None)
  Receive Date: 20240924
  Receipt Date: 20240924
  Transmission Date: 20241016
  Serious: Yes (Other)
  Sender: Public
  Company Number: None

PATIENT
  Age: 71 Year
  Sex: Male
  Weight: 107 kg

DRUGS (4)
  1. LEQEMBI [Suspect]
     Active Substance: LECANEMAB-IRMB
     Indication: Dementia Alzheimer^s type
     Dosage: 1070 MG AEVERY 2 WEEKS INTRAVENOUS
     Route: 042
     Dates: start: 20240917, end: 20240917
  2. LEQEMBI [Suspect]
     Active Substance: LECANEMAB-IRMB
     Indication: Dementia Alzheimer^s type
     Dosage: 1070  MG EVERY 2 WEEKS INTRAVENOUS ?
     Route: 042
     Dates: start: 20240917, end: 20240917
  3. TYLENOL [Concomitant]
     Active Substance: ACETAMINOPHEN
     Dates: start: 20240917, end: 20240917
  4. ZYRTEC [Concomitant]
     Active Substance: CETIRIZINE HYDROCHLORIDE
     Dates: start: 20240917, end: 20240917

REACTIONS (3)
  - Chills [None]
  - Infection [None]
  - Infusion related reaction [None]

NARRATIVE: CASE EVENT DATE: 20240917
